FAERS Safety Report 25640254 (Version 1)
Quarter: 2025Q3

REPORT INFORMATION
  Report Type: Spontaneous
  Country: US (occurrence: None)
  Receive Date: 20250801
  Receipt Date: 20250801
  Transmission Date: 20251021
  Serious: No
  Sender: FDA-CTU
  Company Number: None

PATIENT

DRUGS (1)
  1. OXCARBAZEPINE [Suspect]
     Active Substance: OXCARBAZEPINE

REACTIONS (6)
  - Electric shock sensation [None]
  - Facial discomfort [None]
  - Fatigue [None]
  - Brain fog [None]
  - Treatment noncompliance [None]
  - Incorrect dose administered [None]

NARRATIVE: CASE EVENT DATE: 20250801
